FAERS Safety Report 17515450 (Version 1)
Quarter: 2020Q1

REPORT INFORMATION
  Report Type: Report from Study
  Country: CO (occurrence: CO)
  Receive Date: 20200309
  Receipt Date: 20200309
  Transmission Date: 20200409
  Serious: Yes (Hospitalization, Other)
  Sender: FDA-Public Use
  Company Number: CO-ROCHE-2472759

PATIENT
  Sex: Female

DRUGS (2)
  1. TACROLIMUS. [Concomitant]
     Active Substance: TACROLIMUS
  2. CELLCEPT [Suspect]
     Active Substance: MYCOPHENOLATE MOFETIL\MYCOPHENOLATE MOFETIL HYDROCHLORIDE
     Indication: TRANSPLANT
     Dosage: 2 IN THE MORNING AND 2 IN THE NIGHT
     Route: 048

REACTIONS (16)
  - Abdominal pain upper [Unknown]
  - Malaise [Unknown]
  - Pneumonia [Unknown]
  - Headache [Unknown]
  - Diarrhoea [Unknown]
  - Leukopenia [Unknown]
  - Feeling abnormal [Unknown]
  - Immunodeficiency [Unknown]
  - Decreased appetite [Unknown]
  - Anaemia [Unknown]
  - Prescription drug used without a prescription [Unknown]
  - Gastric disorder [Unknown]
  - Constipation [Unknown]
  - Weight decreased [Unknown]
  - Productive cough [Unknown]
  - Back pain [Unknown]
